FAERS Safety Report 7410686-5 (Version None)
Quarter: 2011Q2

REPORT INFORMATION
  Report Type: 
  Country: None (occurrence: None)
  Receive Date: 20110405
  Receipt Date: 20110322
  Transmission Date: 20111010
  Serious: Yes (Other)
  Sender: FDA-Public Use
  Company Number: 1000019743

PATIENT
  Age: 22 Year
  Sex: Male

DRUGS (2)
  1. RISPERIDONE [Suspect]
     Dosage: 80 MG AT MOST (ONCE), ORAL
     Route: 048
     Dates: start: 20110322, end: 20110322
  2. CITALOPRAM HYDROBROMIDE [Suspect]
     Dosage: 120 MG AT MOST (ONCE), ORAL; ORAL
     Route: 048
     Dates: start: 20110322, end: 20110322

REACTIONS (5)
  - MIOSIS [None]
  - HYPERHIDROSIS [None]
  - SUICIDE ATTEMPT [None]
  - TACHYCARDIA [None]
  - MULTIPLE DRUG OVERDOSE INTENTIONAL [None]
